FAERS Safety Report 8839573 (Version 1)
Quarter: 2012Q4

REPORT INFORMATION
  Report Type: 
  Country: CO (occurrence: CO)
  Receive Date: 20121015
  Receipt Date: 20121015
  Transmission Date: 20130627
  Serious: Yes (Hospitalization, Other)
  Sender: FDA-Public Use
  Company Number: PHHY2012CO076348

PATIENT
  Age: 53 None
  Sex: Male

DRUGS (1)
  1. TASIGNA [Suspect]
     Indication: CHRONIC MYELOID LEUKAEMIA
     Dosage: 200 mg, UNK
     Route: 048
     Dates: start: 20120615, end: 20120831

REACTIONS (6)
  - General physical health deterioration [Unknown]
  - Fluid retention [Unknown]
  - Epistaxis [Unknown]
  - Vomiting [Unknown]
  - Chronic myeloid leukaemia [Unknown]
  - Malignant neoplasm progression [Unknown]
